FAERS Safety Report 6033526-8 (Version None)
Quarter: 2009Q1

REPORT INFORMATION
  Report Type: 
  Country: None (occurrence: None)
  Receive Date: 20090109
  Receipt Date: 20081230
  Transmission Date: 20090719
  Serious: No
  Sender: FDA-Public Use
  Company Number: US-B.I. PHARMACEUTICALS,INC./RIDGEFIELD-2008-BP-17970PF

PATIENT
  Age: 82 Year
  Sex: Female
  Weight: 51 kg

DRUGS (5)
  1. SPIRIVA [Suspect]
     Indication: CHRONIC OBSTRUCTIVE PULMONARY DISEASE
     Dosage: 18MCG
     Route: 055
     Dates: start: 20080901
  2. FORADIL [Concomitant]
     Dates: start: 20080929
  3. CRESTOR [Concomitant]
  4. TIMOLOL [Concomitant]
  5. PROCARDIA XL [Concomitant]

REACTIONS (4)
  - DRY MOUTH [None]
  - EYE PAIN [None]
  - LACRIMATION INCREASED [None]
  - STOMATITIS [None]
